FAERS Safety Report 19210162 (Version 1)
Quarter: 2021Q2

REPORT INFORMATION
  Report Type: Spontaneous
  Country: US (occurrence: US)
  Receive Date: 20210504
  Receipt Date: 20210504
  Transmission Date: 20210717
  Serious: Yes (Hospitalization, Other)
  Sender: FDA-Public Use
  Company Number: US-ABBVIE-21K-163-3881894-00

PATIENT
  Sex: Male

DRUGS (10)
  1. OXYCONTIN [Suspect]
     Active Substance: OXYCODONE HYDROCHLORIDE
     Indication: MATERNAL EXPOSURE TIMING UNSPECIFIED
     Route: 064
  2. DILAUDID [Suspect]
     Active Substance: HYDROMORPHONE HYDROCHLORIDE
     Indication: PRODUCT USED FOR UNKNOWN INDICATION
     Route: 064
  3. MS CONTIN [Suspect]
     Active Substance: MORPHINE SULFATE
     Indication: MATERNAL EXPOSURE TIMING UNSPECIFIED
     Route: 064
  4. OXYIR [Suspect]
     Active Substance: OXYCODONE HYDROCHLORIDE
     Indication: MATERNAL EXPOSURE TIMING UNSPECIFIED
     Route: 064
  5. OXYCODONE [Suspect]
     Active Substance: OXYCODONE
     Indication: MATERNAL EXPOSURE TIMING UNSPECIFIED
     Dosage: EXTENDED RELEASE TABLET
     Route: 064
  6. OXYCODONE [Suspect]
     Active Substance: OXYCODONE
     Dosage: IMMEDIATE RELEASE TABLET
     Route: 064
  7. OXYFAST [Suspect]
     Active Substance: OXYCODONE
     Indication: MATERNAL EXPOSURE TIMING UNSPECIFIED
     Route: 064
  8. NARCO [FENTANYL CITRATE] [Suspect]
     Active Substance: FENTANYL CITRATE
     Indication: MATERNAL EXPOSURE TIMING UNSPECIFIED
     Route: 064
  9. HYDROCODONE/ACETAMINOPHEN [Suspect]
     Active Substance: ACETAMINOPHEN\HYDROCODONE
     Indication: MATERNAL EXPOSURE TIMING UNSPECIFIED
     Route: 064
  10. HYDROMORPHONE [Suspect]
     Active Substance: HYDROMORPHONE
     Indication: MATERNAL EXPOSURE TIMING UNSPECIFIED
     Dosage: IMMEDIATE RELEASE TABLET
     Route: 064

REACTIONS (4)
  - Unevaluable event [Unknown]
  - Drug withdrawal syndrome neonatal [Unknown]
  - Foetal exposure during pregnancy [Unknown]
  - Drug dependence [Unknown]

NARRATIVE: CASE EVENT DATE: 2013
